FAERS Safety Report 21139446 (Version 1)
Quarter: 2022Q3

REPORT INFORMATION
  Report Type: Spontaneous
  Country: IT (occurrence: IT)
  Receive Date: 20220727
  Receipt Date: 20220727
  Transmission Date: 20221026
  Serious: Yes (Other)
  Sender: FDA-Public Use
  Company Number: IT-009507513-2207ITA008369

PATIENT
  Age: 47 Year
  Sex: Male

DRUGS (3)
  1. PEMBROLIZUMAB [Suspect]
     Active Substance: PEMBROLIZUMAB
     Indication: Malignant melanoma stage IV
     Dosage: 2 MILLIGRAM/KILOGRAM, Q3W
  2. DABRAFENIB [Concomitant]
     Active Substance: DABRAFENIB
     Dosage: 150 MG TWICE DAILY
  3. TRAMETINIB [Concomitant]
     Active Substance: TRAMETINIB
     Dosage: 2 MG ONCE DAILY

REACTIONS (1)
  - Acute kidney injury [Recovered/Resolved]
